FAERS Safety Report 25089002 (Version 1)
Quarter: 2025Q1

REPORT INFORMATION
  Report Type: Spontaneous
  Country: SE (occurrence: SE)
  Receive Date: 20250318
  Receipt Date: 20250318
  Transmission Date: 20250408
  Serious: Yes (Other)
  Sender: PFIZER
  Company Number: SE-Orion Corporation ORION PHARMA-TREX2025-0055

PATIENT
  Age: 64 Year
  Sex: Female

DRUGS (1)
  1. METHOTREXATE [Suspect]
     Active Substance: METHOTREXATE

REACTIONS (20)
  - Spinal fracture [Unknown]
  - Depressed level of consciousness [Unknown]
  - Pain [Unknown]
  - Musculoskeletal disorder [Unknown]
  - Muscle spasms [Unknown]
  - Discoloured vomit [Unknown]
  - C-reactive protein increased [Unknown]
  - Full blood count increased [Unknown]
  - Dizziness [Unknown]
  - Pyrexia [Unknown]
  - Headache [Unknown]
  - Toxicity to various agents [Unknown]
  - Fatigue [Unknown]
  - Urinary incontinence [Unknown]
  - Gait disturbance [Unknown]
  - General physical health deterioration [Unknown]
  - Alopecia [Unknown]
  - Depression [Unknown]
  - Osteoporosis [Unknown]
  - Anaemia [Unknown]
